FAERS Safety Report 5405253-9 (Version None)
Quarter: 2007Q3

REPORT INFORMATION
  Report Type: 
  Country: None (occurrence: None)
  Receive Date: 20070803
  Receipt Date: 20070802
  Transmission Date: 20080115
  Serious: Yes (Hospitalization)
  Sender: FDA-Public Use
  Company Number: FR-BRISTOL-MYERS SQUIBB COMPANY-13866652

PATIENT
  Age: 15 Year
  Sex: Female

DRUGS (9)
  1. BICNU [Suspect]
     Indication: HODGKIN'S DISEASE STAGE III
     Route: 042
     Dates: start: 20060522, end: 20060527
  2. VINDESINE [Suspect]
     Indication: HODGKIN'S DISEASE STAGE III
  3. ADRIAMYCIN PFS [Suspect]
     Indication: HODGKIN'S DISEASE STAGE III
  4. ETOPOSIDE [Suspect]
     Indication: HODGKIN'S DISEASE STAGE III
  5. METHYLPREDNISOLONE 16MG TAB [Suspect]
     Indication: HODGKIN'S DISEASE STAGE III
  6. PREDNISOLONE [Concomitant]
  7. ZOFRAN [Concomitant]
  8. LARGACTIL [Concomitant]
  9. BACTRIM [Concomitant]

REACTIONS (2)
  - FEBRILE BONE MARROW APLASIA [None]
  - MUCOSAL INFLAMMATION [None]
